FAERS Safety Report 6085940-2 (Version None)
Quarter: 2009Q1

REPORT INFORMATION
  Report Type: 
  Country: None (occurrence: None)
  Receive Date: 20090220
  Receipt Date: 20090213
  Transmission Date: 20090719
  Serious: Yes (Death, Other)
  Sender: FDA-Public Use
  Company Number: BR-WYE-H08190209

PATIENT
  Sex: Male
  Weight: 110 kg

DRUGS (2)
  1. EFFEXOR XR [Suspect]
     Indication: SEDATION
     Dosage: UNSPECIFIED
     Route: 048
     Dates: start: 20010101, end: 20040101
  2. PROLOPA [Concomitant]
     Dosage: UNSPECIFIED
     Route: 048

REACTIONS (3)
  - BLOOD PRESSURE INCREASED [None]
  - CARDIAC ARREST [None]
  - DEATH [None]
